FAERS Safety Report 15321166 (Version 2)
Quarter: 2018Q4

REPORT INFORMATION
  Report Type: Spontaneous
  Country: US (occurrence: US)
  Receive Date: 20180827
  Receipt Date: 20181102
  Transmission Date: 20190204
  Serious: Yes (Other)
  Sender: FDA-Public Use
  Company Number: US-SA-2018SA232429

PATIENT
  Age: 78 Year
  Sex: Female
  Weight: 61.25 kg

DRUGS (3)
  1. TAXOTERE [Suspect]
     Active Substance: DOCETAXEL
     Indication: BREAST CANCER FEMALE
     Dosage: 120 MG, Q3W
     Route: 042
     Dates: start: 20090227, end: 20090227
  2. PARAPLATIN [Concomitant]
     Active Substance: CARBOPLATIN
  3. TAXOTERE [Suspect]
     Active Substance: DOCETAXEL
     Dosage: 120 MG, Q3W
     Route: 042
     Dates: start: 20090611, end: 20090611

REACTIONS (1)
  - Alopecia [Not Recovered/Not Resolved]

NARRATIVE: CASE EVENT DATE: 200903
